FAERS Safety Report 10674345 (Version 1)
Quarter: 2014Q4

REPORT INFORMATION
  Report Type: Spontaneous
  Country: US (occurrence: US)
  Receive Date: 20141224
  Receipt Date: 20141224
  Transmission Date: 20150529
  Serious: No
  Sender: FDA-Public Use
  Company Number: US-PFIZER INC-2014350781

PATIENT
  Age: 40 Year
  Sex: Male
  Weight: 102 kg

DRUGS (8)
  1. LYRICA [Suspect]
     Active Substance: PREGABALIN
     Dosage: 100 MG, 2X/DAY (50 MG, 2 IN THE AM AND 2 IN THE AFTERNOON)
  2. LYRICA [Suspect]
     Active Substance: PREGABALIN
     Indication: FIBROMYALGIA
     Dosage: 50 MG, 1X/DAY IN THE MORNING
     Dates: start: 201410
  3. ATENOLOL. [Concomitant]
     Active Substance: ATENOLOL
     Indication: ANGINA PECTORIS
     Dosage: 25 MG, 2X/DAY
  4. ISOSORBIDE [Concomitant]
     Active Substance: ISOSORBIDE
     Indication: BLOOD PRESSURE
  5. LYRICA [Suspect]
     Active Substance: PREGABALIN
     Dosage: 50 MG,2 IN THE AM AND 1 IN THE AFTERNOON
  6. LYRICA [Suspect]
     Active Substance: PREGABALIN
     Dosage: 50 MG, 2X/DAY (1 IN THE AM AND 1 IN THE AFTERNOON)
  7. ISOSORBIDE [Concomitant]
     Active Substance: ISOSORBIDE
     Indication: ANGINA PECTORIS
     Dosage: 30 MG, 1X/DAY
  8. TRAMADOL [Concomitant]
     Active Substance: TRAMADOL
     Indication: PAIN
     Dosage: 50 MG, 3 TIMES AS NEEDED

REACTIONS (8)
  - Somnolence [Unknown]
  - Pain [Unknown]
  - Dizziness [Not Recovered/Not Resolved]
  - Arthralgia [Unknown]
  - Psychomotor hyperactivity [Unknown]
  - Drug effect incomplete [Not Recovered/Not Resolved]
  - Ear discomfort [Unknown]
  - Fatigue [Not Recovered/Not Resolved]

NARRATIVE: CASE EVENT DATE: 2014
